FAERS Safety Report 6013880-3 (Version None)
Quarter: 2008Q4

REPORT INFORMATION
  Report Type: 
  Country: None (occurrence: None)
  Receive Date: 20081219
  Receipt Date: 20081212
  Transmission Date: 20090506
  Serious: Yes (Other)
  Sender: FDA-Public Use
  Company Number: US-ELI_LILLY_AND_COMPANY-US200812003538

PATIENT
  Age: 56 Year
  Sex: Female

DRUGS (2)
  1. HUMALOG [Suspect]
     Route: 058
  2. HUMAN INSULIN (RDNA ORIGIN) [Suspect]

REACTIONS (5)
  - BONE DISORDER [None]
  - BREAST CANCER [None]
  - CORONARY ARTERY BYPASS [None]
  - FALL [None]
  - GASTRIC CANCER [None]
